FAERS Safety Report 17347126 (Version 1)
Quarter: 2020Q1

REPORT INFORMATION
  Report Type: Spontaneous
  Country: US (occurrence: US)
  Receive Date: 20200114
  Receipt Date: 20200114
  Transmission Date: 20200409
  Serious: No
  Sender: FDA-Public Use
  Company Number: None

PATIENT
  Age: 74 Year
  Sex: Male
  Weight: 73.94 kg

DRUGS (1)
  1. ALOGLIPTIN (ALOGLIPTTIN 6.25MG TAB) [Suspect]
     Active Substance: ALOGLIPTIN
     Dosage: OTHER DOSE:6.25MG TAB;?
     Route: 048
     Dates: start: 20190723, end: 20200107

REACTIONS (2)
  - Abdominal pain [None]
  - Abdominal distension [None]

NARRATIVE: CASE EVENT DATE: 20200107
